FAERS Safety Report 4389189-0 (Version None)
Quarter: 2004Q2

REPORT INFORMATION
  Report Type: 
  Country: None (occurrence: None)
  Receive Date: 20040628
  Receipt Date: 20040614
  Transmission Date: 20050107
  Serious: Yes (Hospitalization)
  Sender: FDA-Public Use
  Company Number: 200410264BFR

PATIENT
  Age: 15 Year
  Sex: Female
  Weight: 54.6 kg

DRUGS (24)
  1. CIPROFLOXACIN [Suspect]
     Indication: PYREXIA
     Dosage: NI, NI; ORAL
     Route: 048
     Dates: start: 20040303, end: 20040405
  2. BAYPEN (MEZLOCILLIN SODIUM) [Suspect]
     Indication: PYREXIA
     Dosage: NI, NI, NI
     Route: 065
     Dates: start: 20040303, end: 20040405
  3. ABELCET [Suspect]
     Indication: CANDIDIASIS
     Dosage: NI, NI, NI
     Dates: start: 20040312, end: 20040407
  4. SOLU-MEDROL [Concomitant]
  5. CORTANCYL [Concomitant]
  6. CELLCEPT [Concomitant]
  7. PROGRAF [Concomitant]
  8. VANCOMYCIN [Concomitant]
  9. TAZOCILLINE [Concomitant]
  10. CYMEVAN [Concomitant]
  11. ZENAPAX [Concomitant]
  12. URSOLVAN [Concomitant]
  13. FUNGIZONE [Concomitant]
  14. ASPEGIC/FRA/ [Concomitant]
  15. ROVALCYTE [Concomitant]
  16. AMLODIPINE [Concomitant]
  17. OMEPRAZOLE [Concomitant]
  18. UN-ALFA [Concomitant]
  19. ULCAR [Concomitant]
  20. ROCEPHIN [Concomitant]
  21. CLAMOXYL/NET/ [Concomitant]
  22. NICARDIPINE HCL [Concomitant]
  23. LASIX [Concomitant]
  24. ALBUMIN (HUMAN) [Concomitant]

REACTIONS (1)
  - PANCYTOPENIA [None]
